FAERS Safety Report 5851598-8 (Version None)
Quarter: 2008Q3

REPORT INFORMATION
  Report Type: 
  Country: None (occurrence: None)
  Receive Date: 20080820
  Receipt Date: 20080808
  Transmission Date: 20090109
  Serious: Yes (Hospitalization)
  Sender: FDA-Public Use
  Company Number: IT-ELI_LILLY_AND_COMPANY-IT200808001778

PATIENT
  Sex: Male

DRUGS (4)
  1. HUMALOG [Suspect]
     Indication: TYPE 1 DIABETES MELLITUS
     Dosage: 28 IU, DAILY (1/D)
     Route: 058
     Dates: start: 20000101, end: 20080721
  2. HUMALOG [Suspect]
     Dosage: 25 IU (6U+9U+10U), DAILY (1/D)
     Route: 058
  3. LANTUS [Concomitant]
     Indication: TYPE 1 DIABETES MELLITUS
     Dosage: 26 IU, DAILY (1/D)
     Route: 058
     Dates: start: 20000101, end: 20080721
  4. LANTUS [Concomitant]
     Dosage: 22 IU, DAILY (1/D)
     Route: 058

REACTIONS (3)
  - HYPOGLYCAEMIA [None]
  - INFLUENZA [None]
  - SYNCOPE [None]
